FAERS Safety Report 17651647 (Version 3)
Quarter: 2022Q1

REPORT INFORMATION
  Report Type: Spontaneous
  Country: FR (occurrence: FR)
  Receive Date: 20200409
  Receipt Date: 20220124
  Transmission Date: 20220423
  Serious: Yes (Other)
  Sender: FDA-Public Use
  Company Number: FR-009507513-2004FRA001713

PATIENT
  Age: 64 Year
  Sex: Female

DRUGS (1)
  1. PEMBROLIZUMAB [Suspect]
     Active Substance: PEMBROLIZUMAB
     Indication: Bladder transitional cell carcinoma stage III
     Dosage: UNK

REACTIONS (3)
  - Neutropenia [Not Recovered/Not Resolved]
  - Toxic skin eruption [Recovered/Resolved]
  - Lung disorder [Recovering/Resolving]
